FAERS Safety Report 4645973-7 (Version None)
Quarter: 2005Q2

REPORT INFORMATION
  Report Type: 
  Country: None (occurrence: None)
  Receive Date: 20050425
  Receipt Date: 20050412
  Transmission Date: 20051028
  Serious: Yes (Hospitalization)
  Sender: FDA-Public Use
  Company Number: 200502IM000019

PATIENT
  Age: 49 Year
  Sex: Male
  Weight: 83.2 kg

DRUGS (10)
  1. INTERFERON ALFACON-1 [Suspect]
     Indication: HEPATITIS C
     Dosage: 15 UG, QD, SUBCUTANEOUS
     Route: 058
     Dates: start: 20040907, end: 20050214
  2. INTERFERON GAMMA-1B [Suspect]
     Indication: HEPATITIS C
     Dosage: 100 UG, TIW, SUBCUTANEOUS
     Route: 058
     Dates: start: 20040907, end: 20050214
  3. EFFEXOR [Concomitant]
  4. MULTI-VITAMINS [Concomitant]
  5. TYLENOL (CAPLET) [Concomitant]
  6. IBUPROFEN [Concomitant]
  7. BENADRYL [Concomitant]
  8. PROZAC [Concomitant]
  9. TYLENOL SINUS PM [Concomitant]
  10. TRILEPTAL [Concomitant]

REACTIONS (10)
  - ANXIETY [None]
  - BLOOD AMYLASE INCREASED [None]
  - CARDIAC STRESS TEST ABNORMAL [None]
  - DYSPNOEA [None]
  - ELECTROCARDIOGRAM ABNORMAL [None]
  - GASTROOESOPHAGEAL REFLUX DISEASE [None]
  - LIPASE INCREASED [None]
  - MITRAL VALVE INCOMPETENCE [None]
  - TRICUSPID VALVE INCOMPETENCE [None]
  - WHITE BLOOD CELL COUNT DECREASED [None]
